FAERS Safety Report 7089906-5 (Version None)
Quarter: 2010Q4

REPORT INFORMATION
  Report Type: 
  Country: None (occurrence: None)
  Receive Date: 20101108
  Receipt Date: 20101014
  Transmission Date: 20110411
  Serious: Yes (Death, Other)
  Sender: FDA-Public Use
  Company Number: US-AMGEN-QUU436346

PATIENT

DRUGS (1)
  1. NPLATE [Suspect]
     Indication: IDIOPATHIC THROMBOCYTOPENIC PURPURA
     Dosage: UNK UNK, UNK
     Dates: start: 20090325, end: 20090410

REACTIONS (3)
  - LUNG NEOPLASM MALIGNANT [None]
  - MYELODYSPLASTIC SYNDROME [None]
  - THERAPEUTIC RESPONSE DECREASED [None]
